FAERS Safety Report 20482309 (Version 1)
Quarter: 2022Q1

REPORT INFORMATION
  Report Type: Spontaneous
  Country: GB (occurrence: GB)
  Receive Date: 20220216
  Receipt Date: 20220216
  Transmission Date: 20220423
  Serious: Yes (Other)
  Sender: FDA-Public Use
  Company Number: GB-ORGANON-O2201GBR001706

PATIENT
  Sex: Male

DRUGS (1)
  1. SIMVASTATIN [Suspect]
     Active Substance: SIMVASTATIN
     Indication: Angina pectoris
     Dosage: UNK
     Route: 048
     Dates: start: 2008

REACTIONS (4)
  - Hepatitis B [Unknown]
  - Alanine aminotransferase abnormal [Unknown]
  - Myalgia [Unknown]
  - Adverse drug reaction [Unknown]
